FAERS Safety Report 17163552 (Version 2)
Quarter: 2019Q4

REPORT INFORMATION
  Report Type: Spontaneous
  Country: AR (occurrence: AR)
  Receive Date: 20191217
  Receipt Date: 20191219
  Transmission Date: 20200122
  Serious: Yes (Death, Other)
  Sender: FDA-Public Use
  Company Number: AR-TAKEDA-2019TUS071497

PATIENT
  Age: 35 Year
  Sex: Female

DRUGS (1)
  1. ICLUSIG [Suspect]
     Active Substance: PONATINIB
     Indication: ACUTE LYMPHOCYTIC LEUKAEMIA
     Dosage: 45 MILLIGRAM
     Route: 048

REACTIONS (1)
  - Acute lymphocytic leukaemia [Fatal]
